FAERS Safety Report 4720900-2 (Version None)
Quarter: 2005Q3

REPORT INFORMATION
  Report Type: 
  Country: None (occurrence: None)
  Receive Date: 20050720
  Receipt Date: 20050715
  Transmission Date: 20060218
  Serious: Yes (Death)
  Sender: FDA-Public Use
  Company Number: NLWYE791804JUL05

PATIENT
  Age: 65 Year
  Sex: Male

DRUGS (11)
  1. GEMTUZUMAB OZOGAMICIN (GEMTUZUMAB OZOGAMICIN, INJECTION) [Suspect]
     Indication: ACUTE MYELOID LEUKAEMIA
  2. CYTARABINE [Suspect]
  3. ACETAMINOPHEN [Concomitant]
  4. OXYCONTIN [Concomitant]
  5. IMODIUM [Concomitant]
  6. NEXIUM [Concomitant]
  7. PRIMPERAN TAB [Concomitant]
  8. CIPROFLOXACIN [Concomitant]
  9. DIFLUCAN [Concomitant]
  10. PENICILLIN G [Concomitant]
  11. DAUNORUBICIN HCL [Concomitant]

REACTIONS (1)
  - NEUTROPENIC COLITIS [None]
